FAERS Safety Report 6366561-0 (Version None)
Quarter: 2009Q3

REPORT INFORMATION
  Report Type: 
  Country: None (occurrence: None)
  Receive Date: 20090921
  Receipt Date: 20090907
  Transmission Date: 20100115
  Serious: Yes (Hospitalization, Other)
  Sender: FDA-Public Use
  Company Number: DE-BAYER-200928880GPV

PATIENT
  Age: 69 Year
  Sex: Female
  Weight: 67 kg

DRUGS (11)
  1. SORAFENIB [Suspect]
     Indication: HEPATIC NEOPLASM MALIGNANT
     Dosage: TOTAL DAILY DOSE: 400 MG
     Route: 048
     Dates: start: 20090804, end: 20090815
  2. ERLOTINIB OR PLACEBO [Suspect]
     Indication: HEPATIC NEOPLASM MALIGNANT
     Dates: start: 20090812, end: 20090815
  3. ERLOTINIB OR PLACEBO [Suspect]
     Dates: start: 20090804, end: 20090812
  4. METOHEXAL [Concomitant]
     Indication: HYPERTENSION
     Route: 048
     Dates: start: 20080604
  5. AMLODIPINE [Concomitant]
     Indication: HYPERTENSION
     Route: 048
     Dates: start: 20080604
  6. ASPIRIN [Concomitant]
     Indication: HYPERTENSION
     Route: 048
     Dates: start: 20080604
  7. COAPROVEL [Concomitant]
     Indication: HYPERTENSION
     Dosage: AS USED: 300/25 MG
     Route: 048
     Dates: start: 20080604
  8. GLUCOBAY [Concomitant]
     Indication: DIABETES MELLITUS
     Dosage: 50
     Route: 058
     Dates: start: 20080604
  9. MOXODURA [Concomitant]
     Indication: HYPERTENSION
     Route: 048
     Dates: start: 20080604
  10. ONE ALPHA [Concomitant]
     Indication: RENAL FAILURE
     Dates: start: 20080604
  11. PROTAPHAN [Concomitant]
     Indication: DIABETES MELLITUS
     Route: 058
     Dates: start: 20080604

REACTIONS (4)
  - BLOOD BILIRUBIN INCREASED [None]
  - HEPATIC ENCEPHALOPATHY [None]
  - PALMAR-PLANTAR ERYTHRODYSAESTHESIA SYNDROME [None]
  - RASH [None]
